FAERS Safety Report 7876324-2 (Version None)
Quarter: 2011Q4

REPORT INFORMATION
  Report Type: 
  Country: None (occurrence: None)
  Receive Date: 20111031
  Receipt Date: 20111025
  Transmission Date: 20120403
  Serious: Yes (Hospitalization)
  Sender: FDA-Public Use
  Company Number: US-MERCK-1110USA03858

PATIENT
  Age: 68 Year
  Sex: Female

DRUGS (14)
  1. PROTONIX [Concomitant]
     Route: 065
  2. PROPECIA [Suspect]
     Indication: ALOPECIA
     Route: 048
     Dates: start: 19950101
  3. ALLOPURINOL [Concomitant]
     Route: 065
  4. NITROSTAT [Concomitant]
     Route: 065
  5. FOSAMAX [Concomitant]
     Route: 048
  6. PLAVIX [Concomitant]
     Route: 065
  7. VYTORIN [Concomitant]
     Route: 048
  8. OS-CAL + D [Concomitant]
     Route: 065
  9. POTASSIUM CHLORIDE [Concomitant]
     Route: 065
  10. IMDUR [Concomitant]
     Route: 065
  11. ZOLOFT [Concomitant]
     Route: 065
  12. LIBRAX [Concomitant]
     Route: 065
  13. RESTORIL [Concomitant]
     Route: 065
  14. LASIX [Concomitant]
     Route: 065

REACTIONS (2)
  - VOMITING PROJECTILE [None]
  - ULCER HAEMORRHAGE [None]
